FAERS Safety Report 5999969-3 (Version None)
Quarter: 2008Q4

REPORT INFORMATION
  Report Type: 
  Country: None (occurrence: None)
  Receive Date: 20081215
  Receipt Date: 20081204
  Transmission Date: 20090506
  Serious: Yes (Hospitalization, Other)
  Sender: FDA-Public Use
  Company Number: GB-AVENTIS-200816571EU

PATIENT
  Age: 79 Year
  Sex: Female
  Weight: 59.6 kg

DRUGS (10)
  1. CO AMILOFRUSE [Suspect]
     Indication: HYPERTENSION
     Dosage: DOSE: UNK
     Route: 048
     Dates: start: 20060101, end: 20081008
  2. ALVERINE CITRATE [Concomitant]
  3. ASPIRIN [Concomitant]
  4. BISOPROLOL FUMARATE [Concomitant]
  5. CLOPIDOGREL [Concomitant]
  6. FERROUS SULFATE TAB [Concomitant]
  7. NITROGLYCERIN [Concomitant]
  8. LACTULOSE [Concomitant]
  9. LANSOPRAZOLE [Concomitant]
  10. SIMVASTATIN [Concomitant]

REACTIONS (2)
  - HYPERKALAEMIA [None]
  - HYPONATRAEMIA [None]
